FAERS Safety Report 5410867-6 (Version None)
Quarter: 2007Q3

REPORT INFORMATION
  Report Type: 
  Country: None (occurrence: None)
  Receive Date: 20070810
  Receipt Date: 20070806
  Transmission Date: 20080115
  Serious: Yes (Other)
  Sender: FDA-Public Use
  Company Number: PHEH2007US10219

PATIENT
  Age: 66 Year
  Sex: Female
  Weight: 82.086 kg

DRUGS (30)
  1. ZELNORM [Suspect]
     Indication: CONSTIPATION
     Dosage: 6 MG, BID
     Route: 048
     Dates: end: 20070401
  2. SUDAFED 12 HOUR [Concomitant]
  3. ASTELIN [Concomitant]
  4. MIRALAX [Concomitant]
  5. OXYCODONE HCL [Concomitant]
     Dosage: 5 MG, UNK
  6. TESSALON [Concomitant]
     Dosage: 100 MG, UNK
  7. MUCINEX [Concomitant]
  8. COMBIVENT                               /GFR/ [Concomitant]
  9. XOPENEX [Concomitant]
  10. INSULIN [Concomitant]
  11. TRICOR [Concomitant]
     Dosage: 145 MG, UNK
  12. CRESTOR [Concomitant]
     Dosage: 10 MG, UNK
  13. BUMEX [Concomitant]
  14. POTASSIUM CHLORIDE [Concomitant]
  15. PREVACID [Concomitant]
     Dosage: 30 MG, BID
  16. FOLGARD RX [Concomitant]
     Dosage: 2.2 MG, UNK
  17. FORTEO [Concomitant]
     Dosage: UNK, QD
  18. DIOVAN [Concomitant]
     Dosage: 160 MG, UNK
  19. SYNTHROID [Concomitant]
     Dosage: 0.05 MG, UNK
  20. ZYRTEC [Concomitant]
     Dosage: 10 MG, UNK
  21. OMACOR [Concomitant]
  22. ZYFLO [Concomitant]
     Dosage: 600 MG, QID
  23. ADVAIR DISKUS 100/50 [Concomitant]
  24. PLAQUENIL [Concomitant]
     Dosage: 200 MG, BID
  25. CELEBREX [Concomitant]
     Dosage: 200 MG, UNK
  26. CENTRUM SILVER [Concomitant]
  27. CALCIUM CHLORIDE [Concomitant]
     Dosage: 1200 MG, UNK
  28. ASPIRIN [Concomitant]
     Dosage: 81 MG, UNK
  29. RHINOCORT (BECLOMETASONE DIPROPIONATE) [Concomitant]
  30. IPRATROPIUM BROMIDE [Concomitant]

REACTIONS (4)
  - ANAEMIA [None]
  - BLOOD CREATININE INCREASED [None]
  - GLOMERULAR FILTRATION RATE DECREASED [None]
  - RENAL DISORDER [None]
